FAERS Safety Report 8074667-3 (Version None)
Quarter: 2012Q1

REPORT INFORMATION
  Report Type: 
  Country: None (occurrence: None)
  Receive Date: 20120126
  Receipt Date: 20120123
  Transmission Date: 20120608
  Serious: Yes (Other)
  Sender: FDA-Public Use
  Company Number: US-PFIZER INC-2012018680

PATIENT
  Sex: Female
  Weight: 77.098 kg

DRUGS (4)
  1. PRISTIQ [Suspect]
     Dosage: 50 MG, 1X/DAY
     Route: 048
     Dates: start: 20070101
  2. LEVOTHYROXINE [Concomitant]
     Indication: HYPOTHYROIDISM
     Dosage: 0.25 UG, UNK
  3. XANAX [Concomitant]
     Dosage: 0.25 MG, UNK
  4. ESTRADIOL [Concomitant]
     Dosage: 1 MG, UNK

REACTIONS (3)
  - URINARY BLADDER HAEMORRHAGE [None]
  - BLADDER PAIN [None]
  - BLADDER SPASM [None]
